FAERS Safety Report 23115541 (Version 2)
Quarter: 2023Q4

REPORT INFORMATION
  Report Type: Spontaneous
  Country: US (occurrence: US)
  Receive Date: 20231027
  Receipt Date: 20231215
  Transmission Date: 20240110
  Serious: Yes (Hospitalization, Other)
  Sender: FDA-Public Use
  Company Number: US-SA-SAC20231026000601

PATIENT
  Age: 63 Year
  Sex: Male
  Weight: 65.7 kg

DRUGS (5)
  1. DUPIXENT [Suspect]
     Active Substance: DUPILUMAB
     Indication: Dermatitis atopic
     Dosage: 300 MG, QOW
     Route: 058
  2. OMEPRAZOLE [Concomitant]
     Active Substance: OMEPRAZOLE
  3. VITAMIN D3 [Concomitant]
     Active Substance: CHOLECALCIFEROL
  4. AMLODIPINE BESYLATE [Concomitant]
     Active Substance: AMLODIPINE BESYLATE
  5. ROSUVASTATIN CALCIUM [Concomitant]
     Active Substance: ROSUVASTATIN CALCIUM

REACTIONS (2)
  - Myocardial infarction [Unknown]
  - Weight decreased [Unknown]

NARRATIVE: CASE EVENT DATE: 20231020
